FAERS Safety Report 7507120-3 (Version None)
Quarter: 2011Q2

REPORT INFORMATION
  Report Type: 
  Country: None (occurrence: None)
  Receive Date: 20110526
  Receipt Date: 20110517
  Transmission Date: 20111010
  Serious: No
  Sender: FDA-Public Use
  Company Number: US-B.I. PHARMACEUTICALS,INC./RIDGEFIELD-2011-BP-09996BP

PATIENT
  Sex: Female
  Weight: 70.76 kg

DRUGS (1)
  1. MIRAPEX [Suspect]
     Indication: PARKINSON'S DISEASE
     Dates: start: 20031101

REACTIONS (6)
  - HYPERSEXUALITY [None]
  - PAIN [None]
  - EMOTIONAL DISTRESS [None]
  - PATHOLOGICAL GAMBLING [None]
  - COMPULSIVE SHOPPING [None]
  - OBSESSIVE-COMPULSIVE DISORDER [None]
